FAERS Safety Report 5653983-6 (Version None)
Quarter: 2008Q1

REPORT INFORMATION
  Report Type: 
  Country: None (occurrence: None)
  Receive Date: 20080131
  Receipt Date: 20071001
  Transmission Date: 20080703
  Serious: No
  Sender: FDA-Public Use
  Company Number: US200710000548

PATIENT
  Age: 49 Year
  Sex: Female
  Weight: 92.1 kg

DRUGS (2)
  1. BYETTA [Suspect]
  2. METFORMIN HCL [Concomitant]

REACTIONS (1)
  - NAIL DISORDER [None]
